FAERS Safety Report 6367300-X (Version None)
Quarter: 2009Q3

REPORT INFORMATION
  Report Type: 
  Country: None (occurrence: None)
  Receive Date: 20090921
  Receipt Date: 20090909
  Transmission Date: 20100115
  Serious: Yes (Death, Other)
  Sender: FDA-Public Use
  Company Number: US-PFIZER INC-2009266740

PATIENT

DRUGS (2)
  1. SERTRALINE HCL [Suspect]
  2. VERAPAMIL HCL [Suspect]

REACTIONS (2)
  - CARDIAC ARREST [None]
  - OVERDOSE [None]
